FAERS Safety Report 8310003-2 (Version None)
Quarter: 2012Q2

REPORT INFORMATION
  Report Type: 
  Country: None (occurrence: None)
  Receive Date: 20120425
  Receipt Date: 20120418
  Transmission Date: 20120825
  Serious: Yes (Hospitalization)
  Sender: FDA-Public Use
  Company Number: ES-UCBSA-055683

PATIENT
  Age: 35 Year
  Sex: Male

DRUGS (1)
  1. KEPPRA [Suspect]
     Indication: EPILEPSY
     Dosage: 500 MG
     Route: 048
     Dates: start: 20100601, end: 20100621

REACTIONS (3)
  - GAIT DISTURBANCE [None]
  - CRANIOCEREBRAL INJURY [None]
  - SOMNOLENCE [None]
